FAERS Safety Report 10327949 (Version 1)
Quarter: 2014Q3

REPORT INFORMATION
  Report Type: Spontaneous
  Country: US (occurrence: US)
  Receive Date: 20140721
  Receipt Date: 20140721
  Transmission Date: 20150326
  Serious: No
  Sender: FDA-Public Use
  Company Number: US-PFIZER INC-2014200882

PATIENT
  Age: 55 Year
  Sex: Female
  Weight: 66.7 kg

DRUGS (3)
  1. LYRICA [Suspect]
     Active Substance: PREGABALIN
     Indication: NEUROPATHY PERIPHERAL
     Dosage: 150 MG, 2X/DAY
     Dates: end: 201407
  2. LYRICA [Suspect]
     Active Substance: PREGABALIN
     Indication: NERVE INJURY
     Dosage: 75 MG, 2X/DAY
  3. TRIAMTERENE AND HYDROCHLOROTHIZIDE [Concomitant]
     Indication: OEDEMA
     Dosage: (3.75/2.5) MG, AS NEEDED

REACTIONS (1)
  - Drug ineffective [Unknown]
